FAERS Safety Report 17722424 (Version 1)
Quarter: 2020Q2

REPORT INFORMATION
  Report Type: Spontaneous
  Country: US (occurrence: US)
  Receive Date: 20200429
  Receipt Date: 20200429
  Transmission Date: 20200714
  Serious: No
  Sender: FDA-Public Use
  Company Number: US-PFIZER INC-2020171259

PATIENT
  Sex: Female

DRUGS (2)
  1. IBRANCE [Suspect]
     Active Substance: PALBOCICLIB
     Indication: BREAST CANCER METASTATIC
     Dosage: UNK UNK, CYCLIC(21 DAY ON, 7 DAYS OFF )
     Dates: start: 202001
  2. LETROZOLE. [Suspect]
     Active Substance: LETROZOLE
     Indication: BREAST CANCER METASTATIC
     Dosage: UNK UNK, CYCLIC(21 DAY ON, 7 DAYS OFF )
     Dates: start: 202001

REACTIONS (3)
  - Insomnia [Unknown]
  - Alopecia [Unknown]
  - Fatigue [Unknown]
